FAERS Safety Report 15141949 (Version 2)
Quarter: 2018Q3

REPORT INFORMATION
  Report Type: Spontaneous
  Country: HR (occurrence: HR)
  Receive Date: 20180713
  Receipt Date: 20180817
  Transmission Date: 20181010
  Serious: Yes (Other)
  Sender: FDA-Public Use
  Company Number: HR-TEVA-2018-HR-925310

PATIENT
  Sex: Female

DRUGS (1)
  1. RISSET [Suspect]
     Active Substance: RISPERIDONE
     Dosage: 40 MILLIGRAM DAILY;
     Route: 048
     Dates: start: 20180316, end: 20180316

REACTIONS (3)
  - Intentional overdose [Unknown]
  - Suicide attempt [Unknown]
  - Somnolence [Unknown]

NARRATIVE: CASE EVENT DATE: 20180316
